FAERS Safety Report 5636980-6 (Version None)
Quarter: 2008Q1

REPORT INFORMATION
  Report Type: 
  Country: None (occurrence: None)
  Receive Date: 20080225
  Receipt Date: 20070315
  Transmission Date: 20080703
  Serious: Yes (Other)
  Sender: FDA-Public Use
  Company Number: US-BRISTOL-MYERS SQUIBB COMPANY-13712294

PATIENT
  Age: 75 Year
  Sex: Male
  Weight: 109 kg

DRUGS (4)
  1. GLUCOPHAGE [Suspect]
     Indication: DIABETES MELLITUS
     Dates: end: 20070201
  2. PROCARDIA [Concomitant]
  3. LIPITOR [Concomitant]
  4. ANTIHYPERTENSIVE [Concomitant]

REACTIONS (1)
  - LACTIC ACIDOSIS [None]
